FAERS Safety Report 20113260 (Version 1)
Quarter: 2021Q4

REPORT INFORMATION
  Report Type: Spontaneous
  Country: US (occurrence: None)
  Receive Date: 20211125
  Receipt Date: 20211125
  Transmission Date: 20220303
  Serious: Yes (Hospitalization)
  Sender: FDA-Public Use
  Company Number: 2021A811215

PATIENT
  Age: 22957 Day
  Sex: Female
  Weight: 113.4 kg

DRUGS (2)
  1. BRILINTA [Suspect]
     Active Substance: TICAGRELOR
     Indication: Acute myocardial infarction
     Route: 048
     Dates: start: 20211108, end: 20211115
  2. BRILINTA [Suspect]
     Active Substance: TICAGRELOR
     Indication: Percutaneous coronary intervention
     Route: 048
     Dates: start: 20211108, end: 20211115

REACTIONS (1)
  - Therapy non-responder [Recovering/Resolving]

NARRATIVE: CASE EVENT DATE: 20211108
